FAERS Safety Report 14457735 (Version 1)
Quarter: 2018Q1

REPORT INFORMATION
  Report Type: Spontaneous
  Country: US (occurrence: US)
  Receive Date: 20180128
  Receipt Date: 20180128
  Transmission Date: 20180509
  Serious: Yes (Hospitalization)
  Sender: FDA-Public Use
  Company Number: None

PATIENT
  Age: 79 Year
  Sex: Male
  Weight: 72.2 kg

DRUGS (2)
  1. PREDNISONE 5MG TAB [Suspect]
     Active Substance: PREDNISONE
     Indication: PROSTATE CANCER
     Route: 048
     Dates: start: 20170926
  2. ZYTIGA [Suspect]
     Active Substance: ABIRATERONE ACETATE
     Indication: PROSTATE CANCER
     Route: 048
     Dates: start: 20170926

REACTIONS (3)
  - Procedural complication [None]
  - Coronary arterial stent insertion [None]
  - Cerebrovascular accident [None]

NARRATIVE: CASE EVENT DATE: 20180108
